FAERS Safety Report 6732706-3 (Version None)
Quarter: 2010Q2

REPORT INFORMATION
  Report Type: 
  Country: None (occurrence: None)
  Receive Date: 20100514
  Receipt Date: 20100506
  Transmission Date: 20101027
  Serious: Yes (Hospitalization)
  Sender: FDA-Public Use
  Company Number: 011527

PATIENT
  Sex: Female
  Weight: 56 kg

DRUGS (3)
  1. ROTIGOTINE (ROTIGOTINE) [Suspect]
     Indication: PARKINSON'S DISEASE
     Dosage: (6 MG QD TRANSDERMAL)
     Route: 062
  2. AMANTADIN (AMANTADIN) [Suspect]
     Indication: PARKINSON'S DISEASE
     Dosage: (ORAL)
     Route: 048
  3. LEXOTANIL (LEXOTANIL ) (NOT SPECIFIED) [Suspect]
     Dosage: (1.5 MG QD ORAL)
     Route: 048

REACTIONS (3)
  - CONFUSIONAL STATE [None]
  - DELIRIUM [None]
  - PSYCHOTIC DISORDER [None]
